FAERS Safety Report 4840439-3 (Version None)
Quarter: 2005Q4

REPORT INFORMATION
  Report Type: 
  Country: None (occurrence: None)
  Receive Date: 20051128
  Receipt Date: 20051128
  Transmission Date: 20060501
  Serious: Yes (Life-Threatening, Hospitalization)
  Sender: FDA-Public Use
  Company Number: None

PATIENT
  Age: 72 Year
  Sex: Male
  Weight: 95.2554 kg

DRUGS (8)
  1. COREG [Suspect]
     Indication: CARDIOMYOPATHY
     Dosage: 6.25 TWICE DAILY
  2. POTASSIUM [Concomitant]
  3. FURASEMID [Concomitant]
  4. LIPITOR [Concomitant]
  5. NORVASC [Concomitant]
  6. CUMADIN [Concomitant]
  7. LISINOPRIL [Concomitant]
  8. AMIODARONE [Concomitant]

REACTIONS (13)
  - ASTHENIA [None]
  - BLOOD PRESSURE DECREASED [None]
  - DEPRESSED LEVEL OF CONSCIOUSNESS [None]
  - DYSPNOEA [None]
  - EYE ROLLING [None]
  - FEELING ABNORMAL [None]
  - FOAMING AT MOUTH [None]
  - HEADACHE [None]
  - HEART RATE DECREASED [None]
  - HYPOTONIA [None]
  - PALLOR [None]
  - SYNCOPE [None]
  - VERTIGO [None]
